FAERS Safety Report 22951497 (Version 5)
Quarter: 2024Q1

REPORT INFORMATION
  Report Type: Report from Study
  Country: US (occurrence: US)
  Receive Date: 20230918
  Receipt Date: 20240228
  Transmission Date: 20240410
  Serious: Yes (Other)
  Sender: FDA-Public Use
  Company Number: US-ABBVIE-5406248

PATIENT
  Sex: Female

DRUGS (3)
  1. HUMIRA [Suspect]
     Active Substance: ADALIMUMAB
     Indication: Rheumatoid arthritis
     Dosage: FORM STRENGTH: 40 MILLIGRAM CITRATE FREE?LAST ADMIN DATE: 2023
     Route: 058
     Dates: start: 20231015
  2. HUMIRA [Suspect]
     Active Substance: ADALIMUMAB
     Dosage: FORM STRENGTH: 40 MILLIGRAM?CITRATE FREE
     Route: 058
     Dates: start: 20220301, end: 2023
  3. HUMIRA [Suspect]
     Active Substance: ADALIMUMAB
     Dosage: FORM STRENGTH: 40 MILLIGRAM CITRATE FREE?FIRST ADMIN DATE: 2023
     Route: 058

REACTIONS (6)
  - Renal failure [Not Recovered/Not Resolved]
  - Bradykinesia [Not Recovered/Not Resolved]
  - Micturition frequency decreased [Unknown]
  - Musculoskeletal stiffness [Not Recovered/Not Resolved]
  - Constipation [Unknown]
  - Pain [Not Recovered/Not Resolved]

NARRATIVE: CASE EVENT DATE: 20230101
